FAERS Safety Report 5680893-0 (Version None)
Quarter: 2008Q1

REPORT INFORMATION
  Report Type: 
  Country: None (occurrence: None)
  Receive Date: 20080326
  Receipt Date: 20080314
  Transmission Date: 20080703
  Serious: Yes (Other)
  Sender: FDA-Public Use
  Company Number: US-PFIZER INC-2007052788

PATIENT
  Sex: Female
  Weight: 49.9 kg

DRUGS (8)
  1. LYRICA [Suspect]
     Indication: POST HERPETIC NEURALGIA
     Dates: start: 20070413, end: 20070413
  2. FOSAMAX [Concomitant]
  3. AMIODARONE HCL [Concomitant]
  4. PLAVIX [Concomitant]
  5. LASIX [Concomitant]
  6. SYNTHROID [Concomitant]
  7. DARVOCET [Concomitant]
  8. FLOMAX [Concomitant]

REACTIONS (7)
  - AGITATION [None]
  - CEREBROVASCULAR ACCIDENT [None]
  - CONFUSIONAL STATE [None]
  - DISORIENTATION [None]
  - HALLUCINATION [None]
  - HOSTILITY [None]
  - PSYCHOTIC DISORDER [None]
